FAERS Safety Report 7643363-6 (Version None)
Quarter: 2011Q3

REPORT INFORMATION
  Report Type: 
  Country: None (occurrence: None)
  Receive Date: 20110729
  Receipt Date: 20110720
  Transmission Date: 20111222
  Serious: Yes (Life-Threatening, Other)
  Sender: FDA-Public Use
  Company Number: JP-BRISTOL-MYERS SQUIBB COMPANY-15830714

PATIENT
  Age: 37 Year
  Sex: Male
  Weight: 63 kg

DRUGS (2)
  1. TAXOL [Suspect]
     Indication: THYMOMA
     Dosage: 14MAY10-25JUN10,NO OF CYCLES:6,02JUL10,23JUL10-20JUL10,13OCT10
     Route: 041
     Dates: start: 20100401
  2. PARAPLATIN [Suspect]
     Indication: THYMOMA
     Dosage: 14MAY10-25JUN10,NO OF CYCLES:2,02JUL10,23JUL10-20JUL10,13OCT10
     Route: 041
     Dates: start: 20100401

REACTIONS (3)
  - POLYMYOSITIS [None]
  - RESPIRATORY ARREST [None]
  - DYSPHAGIA [None]
